FAERS Safety Report 9991969 (Version 4)
Quarter: 2014Q3

REPORT INFORMATION
  Report Type: Spontaneous
  Country: JP (occurrence: JP)
  Receive Date: 20140310
  Receipt Date: 20140829
  Transmission Date: 20150326
  Serious: Yes (Other)
  Sender: FDA-Public Use
  Company Number: PHHY2014JP028472

PATIENT
  Age: 58 Year
  Sex: Male
  Weight: 60 kg

DRUGS (6)
  1. AVASTIN [Suspect]
     Active Substance: BEVACIZUMAB
     Indication: COLON CANCER
     Dosage: 300 MG, PER ADMINISTRATION
     Route: 042
     Dates: start: 20111006, end: 20130529
  2. AVASTIN [Suspect]
     Active Substance: BEVACIZUMAB
     Dosage: 300 MG, PER ADMINISTRATION
     Route: 042
     Dates: start: 20140108, end: 20140122
  3. TOBRACIN [Concomitant]
     Indication: COLON CANCER
     Dosage: 160 MG, UNK
     Dates: start: 20111006
  4. ZOMETA [Suspect]
     Active Substance: ZOLEDRONIC ACID
     Indication: METASTASES TO BONE
     Dosage: 4 MG, (PER ADMINISTRATION)
     Route: 041
     Dates: start: 20111007, end: 20130925
  5. AVASTIN [Suspect]
     Active Substance: BEVACIZUMAB
     Dosage: 400 MG, PER ADMINISTRATION
     Route: 042
     Dates: start: 20130703, end: 20131127
  6. TS-1 [Concomitant]
     Active Substance: GIMERACIL\OTERACIL POTASSIUM\TEGAFUR
     Indication: COLON CANCER
     Dosage: 80 MG, UNK
     Route: 048
     Dates: start: 20111006

REACTIONS (12)
  - Toothache [Unknown]
  - Sinusitis [Unknown]
  - Pain in jaw [Unknown]
  - Gingival erythema [Unknown]
  - Oral herpes [Unknown]
  - Exposed bone in jaw [Unknown]
  - Swelling [Unknown]
  - Soft tissue infection [Unknown]
  - Gingival swelling [Unknown]
  - Osteomyelitis [Not Recovered/Not Resolved]
  - Pulpitis dental [Recovering/Resolving]
  - Erythema [Unknown]

NARRATIVE: CASE EVENT DATE: 20131106
